FAERS Safety Report 7717671-4 (Version None)
Quarter: 2011Q3

REPORT INFORMATION
  Report Type: 
  Country: None (occurrence: None)
  Receive Date: 20110830
  Receipt Date: 20110830
  Transmission Date: 20111222
  Serious: Yes (Life-Threatening)
  Sender: FDA-Public Use
  Company Number: None

PATIENT
  Age: 47 Year
  Sex: Female
  Weight: 95.254 kg

DRUGS (3)
  1. RECLAST [Suspect]
     Indication: OSTEOPOROSIS
     Route: 041
     Dates: start: 20101019, end: 20101019
  2. RECLAST [Suspect]
     Indication: RIB FRACTURE
     Route: 041
     Dates: start: 20101019, end: 20101019
  3. RECLAST [Suspect]
     Indication: BONE DENSITY ABNORMAL
     Route: 041
     Dates: start: 20101019, end: 20101019

REACTIONS (31)
  - TREMOR [None]
  - MUSCLE SPASMS [None]
  - DISORIENTATION [None]
  - WEIGHT BEARING DIFFICULTY [None]
  - PAIN IN EXTREMITY [None]
  - OEDEMA PERIPHERAL [None]
  - TACHYCARDIA [None]
  - HEPATOMEGALY [None]
  - CONSTIPATION [None]
  - AMNESIA [None]
  - PAIN [None]
  - BODY TEMPERATURE INCREASED [None]
  - URINARY TRACT DISORDER [None]
  - FEELING COLD [None]
  - DIARRHOEA [None]
  - LOSS OF CONSCIOUSNESS [None]
  - MYALGIA [None]
  - ARTHRALGIA [None]
  - DEPRESSION [None]
  - NAUSEA [None]
  - MUSCLE RUPTURE [None]
  - GROIN PAIN [None]
  - SKIN DISORDER [None]
  - URINARY RETENTION [None]
  - TENDON RUPTURE [None]
  - LEFT VENTRICULAR HYPERTROPHY [None]
  - SPINAL DISORDER [None]
  - IRRITABILITY [None]
  - HYPERTROPHY [None]
  - CONFUSIONAL STATE [None]
  - VITAMIN SUPPLEMENTATION [None]
